FAERS Safety Report 24949633 (Version 1)
Quarter: 2025Q1

REPORT INFORMATION
  Report Type: Spontaneous
  Country: US (occurrence: US)
  Receive Date: 20250210
  Receipt Date: 20250210
  Transmission Date: 20250408
  Serious: Yes (Other)
  Sender: Unknown Manufacturer
  Company Number: US-KOANAAP-SML-US-2025-00098

PATIENT
  Age: 63 Year
  Sex: Female

DRUGS (4)
  1. AZACITIDINE [Suspect]
     Active Substance: AZACITIDINE
     Indication: Myelodysplastic syndrome
  2. AZACITIDINE [Suspect]
     Active Substance: AZACITIDINE
     Indication: Scedosporium infection
  3. VENETOCLAX [Suspect]
     Active Substance: VENETOCLAX
     Indication: Myelodysplastic syndrome
  4. VENETOCLAX [Suspect]
     Active Substance: VENETOCLAX
     Indication: Scedosporium infection

REACTIONS (2)
  - Drug ineffective [Unknown]
  - Disease progression [Unknown]
